FAERS Safety Report 20946695 (Version 1)
Quarter: 2022Q2

REPORT INFORMATION
  Report Type: Spontaneous
  Country: DE (occurrence: DE)
  Receive Date: 20220610
  Receipt Date: 20220610
  Transmission Date: 20220721
  Serious: Yes (Hospitalization)
  Sender: FDA-Public Use
  Company Number: DE-NOVARTISPH-NVSC2022DE131393

PATIENT

DRUGS (1)
  1. ZOLGENSMA [Suspect]
     Active Substance: ONASEMNOGENE ABEPARVOVEC-XIOI
     Indication: Product used for unknown indication
     Dosage: UNK, ONCE/SINGLE
     Route: 042

REACTIONS (11)
  - Nasopharyngitis [Unknown]
  - Bronchitis [Unknown]
  - Dyspnoea [Unknown]
  - Aphonia [Recovered/Resolved]
  - Sleep disorder [Recovering/Resolving]
  - Vascular rupture [Unknown]
  - Hypophagia [Unknown]
  - Fluid intake reduced [Unknown]
  - Weight decreased [Unknown]
  - Fatigue [Unknown]
  - Pyrexia [Recovered/Resolved]
